FAERS Safety Report 6099877-6 (Version None)
Quarter: 2009Q1

REPORT INFORMATION
  Report Type: 
  Country: None (occurrence: None)
  Receive Date: 20090303
  Receipt Date: 20090227
  Transmission Date: 20090719
  Serious: Yes (Death)
  Sender: FDA-Public Use
  Company Number: PHHY2009CA06447

PATIENT
  Sex: Female

DRUGS (4)
  1. EXELON [Suspect]
     Indication: DEMENTIA ALZHEIMER'S TYPE
     Dosage: UNK
     Route: 048
     Dates: start: 20071130
  2. ANTIDEPRESSANTS [Concomitant]
  3. HYPNOTICS AND SEDATIVES [Concomitant]
  4. MOOD STABILIZER [Concomitant]

REACTIONS (8)
  - ARRHYTHMIA [None]
  - CARDIAC DISORDER [None]
  - CARDIAC FAILURE CONGESTIVE [None]
  - CARDIOVASCULAR INSUFFICIENCY [None]
  - CORONARY ARTERY DISEASE [None]
  - DEMENTIA [None]
  - MYOCARDIAL INFARCTION [None]
  - OEDEMA [None]
